FAERS Safety Report 9496157 (Version 1)
Quarter: 2013Q3

REPORT INFORMATION
  Report Type: Report from Study
  Country: FR (occurrence: FR)
  Receive Date: 20130904
  Receipt Date: 20130904
  Transmission Date: 20140515
  Serious: Yes (Hospitalization, Other)
  Sender: FDA-Public Use
  Company Number: FR-009507513-1308FRA012080

PATIENT
  Age: 58 Year
  Sex: Male
  Weight: 70 kg

DRUGS (7)
  1. SITAGLIPTIN PHOSPHATE [Suspect]
     Indication: TYPE 2 DIABETES MELLITUS
     Dosage: 100 MG, QD
     Route: 048
     Dates: start: 20091216, end: 2010
  2. SITAGLIPTIN PHOSPHATE [Suspect]
     Dosage: 100 MG, QD
     Route: 048
     Dates: start: 20101025
  3. METFORMIN [Concomitant]
     Dosage: UNK
     Dates: start: 20091216, end: 20100402
  4. AVANDAMET [Concomitant]
     Dosage: UNK
     Dates: start: 20100402, end: 2010
  5. NOVO-NORM [Concomitant]
     Dosage: UNK
     Dates: start: 20100804
  6. EXFORGE [Concomitant]
     Dosage: UNK
     Dates: start: 2010
  7. INEXIUM [Concomitant]

REACTIONS (2)
  - Hospitalisation [Unknown]
  - Drug ineffective [Unknown]
